FAERS Safety Report 18402341 (Version 2)
Quarter: 2020Q4

REPORT INFORMATION
  Report Type: Spontaneous
  Country: US (occurrence: US)
  Receive Date: 20201019
  Receipt Date: 20201029
  Transmission Date: 20210114
  Serious: No
  Sender: FDA-Public Use
  Company Number: US-ASCEND THERAPEUTICS US, LLC-2092923

PATIENT
  Age: 51 Year
  Sex: Female
  Weight: 74.09 kg

DRUGS (2)
  1. ESTROGEL [Suspect]
     Active Substance: ESTRADIOL
     Indication: HORMONE REPLACEMENT THERAPY
     Route: 062
     Dates: start: 20200905, end: 20201006
  2. ESTROGEL [Suspect]
     Active Substance: ESTRADIOL

REACTIONS (1)
  - Application site rash [Recovered/Resolved]

NARRATIVE: CASE EVENT DATE: 20201006
